FAERS Safety Report 8191022-6 (Version None)
Quarter: 2012Q1

REPORT INFORMATION
  Report Type: 
  Country: None (occurrence: None)
  Receive Date: 20120305
  Receipt Date: 20120227
  Transmission Date: 20120608
  Serious: Yes (Hospitalization, Other)
  Sender: FDA-Public Use
  Company Number: 2011SP058412

PATIENT
  Age: 26 Year
  Sex: Female
  Weight: 62 kg

DRUGS (4)
  1. PREGNYL [Suspect]
     Indication: OVULATION INDUCTION
     Dosage: 5000 IU;ONCE;IM
     Route: 030
     Dates: start: 20110220, end: 20110220
  2. CLOMIPHENE CITRATE [Concomitant]
     Indication: OVULATION INDUCTION
     Dosage: 50 MG;QD;PO
     Route: 048
     Dates: start: 20110208, end: 20120212
  3. METFORMIN HYDROCHLORIDE [Concomitant]
  4. GONAL-F (FOLLITROPIN ALFA) (FOLLITROPIN ALFA) [Suspect]
     Indication: OVULATION INDUCTION
     Dosage: 75 IU;QD;SC
     Route: 058
     Dates: start: 20110214, end: 20110219

REACTIONS (8)
  - BENIGN HYDATIDIFORM MOLE [None]
  - OVARIAN HYPERSTIMULATION SYNDROME [None]
  - OVARIAN NEOPLASM [None]
  - ABORTION THREATENED [None]
  - ABORTION INDUCED [None]
  - MATERNAL EXPOSURE BEFORE PREGNANCY [None]
  - HAEMORRHAGE IN PREGNANCY [None]
  - HYPEREMESIS GRAVIDARUM [None]
